FAERS Safety Report 24526327 (Version 2)
Quarter: 2024Q4

REPORT INFORMATION
  Report Type: Spontaneous
  Country: GB (occurrence: GB)
  Receive Date: 20241021
  Receipt Date: 20241220
  Transmission Date: 20250115
  Serious: Yes (Hospitalization, Disabling, Other)
  Sender: NOVO NORDISK
  Company Number: None

PATIENT
  Age: 50 Year
  Sex: Female
  Weight: 69 kg

DRUGS (2)
  1. OZEMPIC [Suspect]
     Active Substance: SEMAGLUTIDE
     Indication: Weight control
     Dosage: 0.25
     Dates: start: 20240709
  2. OZEMPIC [Suspect]
     Active Substance: SEMAGLUTIDE
     Dosage: 0.50
     Dates: end: 20240820

REACTIONS (13)
  - Helicobacter gastritis [Not Recovered/Not Resolved]
  - Constipation [Not Recovered/Not Resolved]
  - Haematemesis [Recovered/Resolved]
  - Histamine intolerance [Unknown]
  - Abdominal pain upper [Not Recovered/Not Resolved]
  - Dyspepsia [Not Recovered/Not Resolved]
  - Gastritis [Not Recovered/Not Resolved]
  - Mast cell activation syndrome [Unknown]
  - Functional gastrointestinal disorder [Unknown]
  - Headache [Unknown]
  - Fatigue [Unknown]
  - Abdominal pain [Unknown]
  - Product use in unapproved indication [Unknown]

NARRATIVE: CASE EVENT DATE: 20240825
